FAERS Safety Report 18144466 (Version 1)
Quarter: 2020Q3

REPORT INFORMATION
  Report Type: Spontaneous
  Country: US (occurrence: US)
  Receive Date: 20200813
  Receipt Date: 20200813
  Transmission Date: 20201103
  Serious: Yes (Hospitalization, Disabling, Other)
  Sender: FDA-Public Use
  Company Number: US-SA-2020SA207281

PATIENT

DRUGS (1)
  1. ZANTAC [Suspect]
     Active Substance: RANITIDINE HYDROCHLORIDE
     Dosage: 3?4 TIMES PER WEEK
     Dates: start: 1980, end: 2014

REACTIONS (8)
  - Disability [Unknown]
  - Emotional distress [Unknown]
  - Prostate cancer [Unknown]
  - Loss of personal independence in daily activities [Unknown]
  - Anxiety [Unknown]
  - Economic problem [Unknown]
  - Pain [Unknown]
  - Mental disorder [Unknown]

NARRATIVE: CASE EVENT DATE: 201706
